FAERS Safety Report 7093528-X (Version None)
Quarter: 2010Q4

REPORT INFORMATION
  Report Type: 
  Country: None (occurrence: None)
  Receive Date: 20101110
  Receipt Date: 20080915
  Transmission Date: 20110411
  Serious: No
  Sender: FDA-Public Use
  Company Number: US-KINGPHARMUSA00001-K200801082

PATIENT
  Sex: Male

DRUGS (1)
  1. INTAL [Suspect]
     Indication: ASTHMA
     Dates: start: 19810101

REACTIONS (2)
  - ASTHMA [None]
  - DRUG INEFFECTIVE [None]
